FAERS Safety Report 17560588 (Version 1)
Quarter: 2020Q1

REPORT INFORMATION
  Report Type: Report from Study
  Country: IE (occurrence: IE)
  Receive Date: 20200319
  Receipt Date: 20200319
  Transmission Date: 20200409
  Serious: Yes (Other)
  Sender: FDA-Public Use
  Company Number: IE-UCBSA-2017047615

PATIENT

DRUGS (1)
  1. LEVETIRACETAM. [Suspect]
     Active Substance: LEVETIRACETAM
     Indication: EPILEPSY

REACTIONS (18)
  - Aggression [Unknown]
  - Intentional self-injury [Unknown]
  - Rash [Unknown]
  - Depressed mood [Unknown]
  - Off label use [Unknown]
  - Insomnia [Unknown]
  - Decreased appetite [Unknown]
  - Drug ineffective [Unknown]
  - Irritability [Unknown]
  - Somnolence [Unknown]
  - Weight increased [Unknown]
  - Dizziness [Unknown]
  - Suicide attempt [Unknown]
  - Hallucination [Unknown]
  - Depression [Unknown]
  - Fatigue [Unknown]
  - Disturbance in attention [Unknown]
  - Anxiety [Unknown]
